FAERS Safety Report 9884423 (Version 1)
Quarter: 2014Q1

REPORT INFORMATION
  Report Type: Spontaneous
  Country: US (occurrence: None)
  Receive Date: 20140207
  Receipt Date: 20140207
  Transmission Date: 20141002
  Serious: Yes (Hospitalization, Other)
  Sender: FDA-Public Use
  Company Number: None

PATIENT
  Sex: 0

DRUGS (3)
  1. HUMALOG [Suspect]
     Indication: DIABETES MELLITUS
     Dosage: 100?TWICE DAILY?BY INJECTION
     Dates: end: 201310
  2. LANTUS [Concomitant]
  3. ASPIRIN [Concomitant]

REACTIONS (3)
  - Pruritus generalised [None]
  - Oedema genital [None]
  - Erythema [None]
